FAERS Safety Report 10632012 (Version 3)
Quarter: 2014Q4

REPORT INFORMATION
  Report Type: Report from Study
  Country: CA (occurrence: CA)
  Receive Date: 20141205
  Receipt Date: 20141223
  Transmission Date: 20150529
  Serious: No
  Sender: FDA-Public Use
  Company Number: CA-ROCHE-1502188

PATIENT
  Age: 60 Year
  Sex: Female
  Weight: 77.18 kg

DRUGS (3)
  1. ACTEMRA [Suspect]
     Active Substance: TOCILIZUMAB
     Route: 058
     Dates: start: 20141211
  2. ACTEMRA [Suspect]
     Active Substance: TOCILIZUMAB
     Indication: RHEUMATOID ARTHRITIS
     Dosage: LAST DOSE ON 26/NOV/2014
     Route: 058
     Dates: start: 20141015
  3. METHADONE [Concomitant]
     Active Substance: METHADONE HYDROCHLORIDE
     Indication: PAIN
     Dosage: START DATE APPROX. GREATER THAN 2 YEARS
     Route: 048

REACTIONS (4)
  - Urine odour abnormal [Recovering/Resolving]
  - Genital herpes simplex [Recovered/Resolved]
  - Headache [Not Recovered/Not Resolved]
  - Dysgeusia [Recovering/Resolving]

NARRATIVE: CASE EVENT DATE: 20141101
